FAERS Safety Report 14412037 (Version 2)
Quarter: 2018Q1

REPORT INFORMATION
  Report Type: Report from Study
  Country: GB (occurrence: GB)
  Receive Date: 20180119
  Receipt Date: 20180209
  Transmission Date: 20180509
  Serious: Yes (Other)
  Sender: FDA-Public Use
  Company Number: GB-JNJFOC-20180121805

PATIENT
  Sex: Female

DRUGS (1)
  1. SIMPONI [Suspect]
     Active Substance: GOLIMUMAB
     Indication: PRODUCT USED FOR UNKNOWN INDICATION
     Route: 058
     Dates: start: 201709

REACTIONS (8)
  - Vaginal abscess [Unknown]
  - Mouth ulceration [Unknown]
  - Eye disorder [Unknown]
  - Nasal ulcer [Not Recovered/Not Resolved]
  - Hordeolum [Unknown]
  - Arthralgia [Not Recovered/Not Resolved]
  - Psoriasis [Unknown]
  - Fatigue [Not Recovered/Not Resolved]
